FAERS Safety Report 22631743 (Version 1)
Quarter: 2023Q2

REPORT INFORMATION
  Report Type: Report from Study
  Country: US (occurrence: US)
  Receive Date: 20230623
  Receipt Date: 20230623
  Transmission Date: 20230722
  Serious: Yes (Other)
  Sender: FDA-Public Use
  Company Number: US-002147023-NVSC2023US140321

PATIENT
  Sex: Female
  Weight: 58.97 kg

DRUGS (5)
  1. COSENTYX [Suspect]
     Active Substance: SECUKINUMAB
     Indication: Psoriasis
     Dosage: UNK
     Route: 065
  2. COSENTYX [Suspect]
     Active Substance: SECUKINUMAB
     Indication: Psoriatic arthropathy
  3. CLOBETASOL [Suspect]
     Active Substance: CLOBETASOL
     Indication: Product used for unknown indication
     Dosage: UNK
     Route: 065
  4. TRAZODONE [Suspect]
     Active Substance: TRAZODONE HYDROCHLORIDE
     Indication: Psoriasis
     Dosage: UNK
     Route: 065
  5. TRAZODONE [Suspect]
     Active Substance: TRAZODONE HYDROCHLORIDE
     Indication: Psoriatic arthropathy

REACTIONS (10)
  - Psoriatic arthropathy [Unknown]
  - Rash erythematous [Unknown]
  - Skin exfoliation [Unknown]
  - Mass [Unknown]
  - Arthralgia [Unknown]
  - Skin lesion [Unknown]
  - Osteoarthritis [Unknown]
  - Macule [Unknown]
  - Psoriasis [Unknown]
  - Therapeutic product effect decreased [Unknown]
